FAERS Safety Report 10452203 (Version 5)
Quarter: 2015Q2

REPORT INFORMATION
  Report Type: Report from Study
  Country: JP (occurrence: JP)
  Receive Date: 20140915
  Receipt Date: 20150615
  Transmission Date: 20150821
  Serious: Yes (Other)
  Sender: FDA-Public Use
  Company Number: PHHY2013JP091125

PATIENT
  Age: 24 Year
  Sex: Male

DRUGS (34)
  1. CLOZARIL [Suspect]
     Active Substance: CLOZAPINE
     Dosage: 50 MG, QD
     Route: 048
     Dates: start: 20130114, end: 20130116
  2. CLOZARIL [Suspect]
     Active Substance: CLOZAPINE
     Dosage: 100 MG, QD
     Route: 048
     Dates: start: 20130119, end: 20130120
  3. CLOZARIL [Suspect]
     Active Substance: CLOZAPINE
     Dosage: 175 MG, QD
     Route: 048
     Dates: start: 20130127, end: 20130129
  4. CLONAZEPAM. [Concomitant]
     Active Substance: CLONAZEPAM
     Indication: SCHIZOPHRENIA, PARANOID TYPE
     Dosage: 2 MG, UNK
     Route: 048
  5. FLUNITRAZEPAM [Concomitant]
     Active Substance: FLUNITRAZEPAM
     Dosage: 1 MG, UNK
     Route: 048
     Dates: start: 20130517, end: 20130606
  6. CLOZARIL [Suspect]
     Active Substance: CLOZAPINE
     Dosage: 225 MG, QD
     Route: 048
     Dates: start: 20130222, end: 20130228
  7. CLOZARIL [Suspect]
     Active Substance: CLOZAPINE
     Dosage: 325 MG, QD
     Route: 048
     Dates: start: 20130419, end: 20130502
  8. TRIHEXYPHENIDYL HYDROCHLORIDE. [Concomitant]
     Active Substance: TRIHEXYPHENIDYL HYDROCHLORIDE
     Indication: PARKINSON^S DISEASE
     Dosage: 4 MG, UNK
     Route: 048
     Dates: end: 20130123
  9. CLOZARIL [Suspect]
     Active Substance: CLOZAPINE
     Indication: SCHIZOPHRENIA, PARANOID TYPE
     Dosage: 12.5 MG, QD
     Route: 048
     Dates: start: 20130110, end: 20130110
  10. CLOZARIL [Suspect]
     Active Substance: CLOZAPINE
     Dosage: 125 MG, QD
     Route: 048
     Dates: start: 20130121, end: 20130123
  11. CLOZARIL [Suspect]
     Active Substance: CLOZAPINE
     Dosage: 350 MG, QD
     Route: 048
     Dates: start: 20130503, end: 20130523
  12. CLOZARIL [Suspect]
     Active Substance: CLOZAPINE
     Dosage: 275 MG, QD
     Route: 048
  13. LIMAS [Suspect]
     Active Substance: LITHIUM CARBONATE
     Dosage: 800 MG, UNK
     Route: 048
     Dates: start: 20130614, end: 20130704
  14. LIMAS [Suspect]
     Active Substance: LITHIUM CARBONATE
     Dosage: 700 MG, UNK
     Route: 048
     Dates: start: 20130705
  15. LENDORMIN DAINIPPO [Concomitant]
     Active Substance: BROTIZOLAM
     Indication: SCHIZOPHRENIA, PARANOID TYPE
     Dosage: 0.25 MG, UNK
     Route: 048
     Dates: start: 20130412
  16. CLOZARIL [Suspect]
     Active Substance: CLOZAPINE
     Dosage: 25 MG, QD
     Route: 048
     Dates: start: 20130111, end: 20130113
  17. CLOZARIL [Suspect]
     Active Substance: CLOZAPINE
     Dosage: 150 MG, QD
     Route: 048
     Dates: start: 20130124, end: 20130126
  18. FLUNITRAZEPAM [Concomitant]
     Active Substance: FLUNITRAZEPAM
     Indication: SCHIZOPHRENIA, PARANOID TYPE
     Dosage: 2 MG, UNK
     Route: 048
     Dates: start: 20130411, end: 20130516
  19. ESZOPICLONE. [Concomitant]
     Active Substance: ESZOPICLONE
     Indication: SCHIZOPHRENIA, PARANOID TYPE
     Dosage: 2 MG, UNK
     Route: 048
     Dates: end: 20130130
  20. CLARITIN [Concomitant]
     Active Substance: LORATADINE
     Indication: SEASONAL ALLERGY
     Dosage: 10 MG, UNK
     Route: 048
     Dates: start: 20130411
  21. CLOZARIL [Suspect]
     Active Substance: CLOZAPINE
     Dosage: 275 MG, QD
     Route: 048
     Dates: start: 20130308, end: 20130325
  22. OLANZAPINE. [Concomitant]
     Active Substance: OLANZAPINE
     Indication: SCHIZOPHRENIA, PARANOID TYPE
     Dosage: 20 MG, UNK
     Route: 048
     Dates: end: 20130207
  23. LITHIUM CARBONATE. [Concomitant]
     Active Substance: LITHIUM CARBONATE
     Indication: SCHIZOPHRENIA, PARANOID TYPE
     Dosage: 800 MG, UNK
     Route: 048
     Dates: start: 20121228
  24. LUNESTA [Concomitant]
     Active Substance: ESZOPICLONE
     Indication: SCHIZOPHRENIA, PARANOID TYPE
     Dosage: 1 MG, UNK
     Route: 048
     Dates: start: 20130513
  25. CLOZARIL [Suspect]
     Active Substance: CLOZAPINE
     Dosage: 200 MG, QD
     Route: 048
     Dates: start: 20130130, end: 20130221
  26. CLOZARIL [Suspect]
     Active Substance: CLOZAPINE
     Dosage: 300 MG, QD
     Route: 048
     Dates: start: 20130326, end: 20130418
  27. CLOZARIL [Suspect]
     Active Substance: CLOZAPINE
     Dosage: 250 MG, UNK
     Route: 048
     Dates: start: 20130301, end: 20130307
  28. CLOZARIL [Suspect]
     Active Substance: CLOZAPINE
     Dosage: 300 MG, QD
     Route: 048
  29. QUETIAPINE [Concomitant]
     Active Substance: QUETIAPINE
     Indication: SCHIZOPHRENIA, PARANOID TYPE
     Dosage: 700 MG, UNK
     Route: 048
     Dates: end: 20130207
  30. CLOZARIL [Suspect]
     Active Substance: CLOZAPINE
     Dosage: 75 MG, QD
     Route: 048
     Dates: start: 20130117, end: 20130118
  31. LIMAS [Suspect]
     Active Substance: LITHIUM CARBONATE
     Indication: SCHIZOPHRENIA, PARANOID TYPE
     Dosage: 900 MG, UNK
     Route: 048
     Dates: end: 20130613
  32. QUAZEPAM. [Concomitant]
     Active Substance: QUAZEPAM
     Indication: SCHIZOPHRENIA, PARANOID TYPE
     Dosage: 30 MG, UNK
     Route: 048
     Dates: start: 20130128
  33. LANDSEN [Concomitant]
     Active Substance: CLONAZEPAM
     Indication: SCHIZOPHRENIA, PARANOID TYPE
     Dosage: 3 MG, UNK
     Route: 048
     Dates: start: 20130411
  34. HORIZON [Concomitant]
     Active Substance: DIAZEPAM
     Indication: SCHIZOPHRENIA, PARANOID TYPE
     Dosage: 5 MG, UNK
     Route: 048
     Dates: start: 20130530, end: 20130530

REACTIONS (16)
  - Haemoglobin decreased [Recovered/Resolved]
  - Haemoglobin decreased [Recovered/Resolved]
  - Extrapyramidal disorder [Recovering/Resolving]
  - Neutrophil percentage decreased [Recovered/Resolved]
  - Polydipsia [Not Recovered/Not Resolved]
  - Salivary hypersecretion [Recovering/Resolving]
  - Tremor [Not Recovered/Not Resolved]
  - Leukocytosis [Recovered/Resolved]
  - Leukocytosis [Recovered/Resolved]
  - Haemoglobin decreased [Recovered/Resolved]
  - Haemoglobin decreased [Recovered/Resolved]
  - Somnolence [Unknown]
  - Monocytosis [Recovered/Resolved]
  - Haemoglobin decreased [Recovered/Resolved]
  - Leukocytosis [Recovered/Resolved]
  - Leukocytosis [Recovered/Resolved]

NARRATIVE: CASE EVENT DATE: 20130131
